FAERS Safety Report 18591521 (Version 2)
Quarter: 2020Q4

REPORT INFORMATION
  Report Type: Spontaneous
  Country: IT (occurrence: IT)
  Receive Date: 20201208
  Receipt Date: 20201229
  Transmission Date: 20210114
  Serious: Yes (Life-Threatening, Hospitalization, Other)
  Sender: FDA-Public Use
  Company Number: IT-SUN PHARMACEUTICAL INDUSTRIES LTD-2020R1-270013

PATIENT
  Age: 50 Year
  Sex: Female

DRUGS (6)
  1. DENOSUMAB [Suspect]
     Active Substance: DENOSUMAB
     Indication: CHEMOTHERAPY
     Dosage: 120 MILLIGRAM
     Route: 042
  2. LETROZOLE. [Suspect]
     Active Substance: LETROZOLE
     Indication: HORMONE THERAPY
     Dosage: 2.5 MILLIGRAM, QD
     Route: 065
  3. FLUOROURACIL. [Suspect]
     Active Substance: FLUOROURACIL
     Indication: CHEMOTHERAPY
     Dosage: 350 MILLIGRAM/SQ. METER
     Route: 042
     Dates: start: 201507
  4. CAPECITABINE. [Suspect]
     Active Substance: CAPECITABINE
     Indication: BREAST CANCER
     Dosage: 2500 MILLIGRAM/SQ. METER,EVERY THREE WEEKS
     Route: 065
  5. VINORELBINE [Suspect]
     Active Substance: VINORELBINE TARTRATE
     Indication: CHEMOTHERAPY
     Dosage: 25 MILLIGRAM/SQ. METER
     Route: 042
     Dates: start: 201507
  6. CALCIUM LEVOFOLINATE [Suspect]
     Active Substance: LEVOLEUCOVORIN CALCIUM
     Indication: CHEMOTHERAPY
     Dosage: 100 MILLIGRAM/SQ. METER
     Route: 042

REACTIONS (8)
  - Anaemia [Unknown]
  - Blood pressure increased [Unknown]
  - Posterior reversible encephalopathy syndrome [Recovered/Resolved]
  - Hallucination, visual [Unknown]
  - Psychomotor hyperactivity [Unknown]
  - Thrombocytopenia [Unknown]
  - Mucosal inflammation [Unknown]
  - Neutropenia [Unknown]
